FAERS Safety Report 23054807 (Version 1)
Quarter: 2023Q4

REPORT INFORMATION
  Report Type: Spontaneous
  Country: US (occurrence: US)
  Receive Date: 20231011
  Receipt Date: 20231011
  Transmission Date: 20240110
  Serious: No
  Sender: FDA-Public Use
  Company Number: US-PERRIGO-23US003862

PATIENT
  Age: 58 Year
  Sex: Male
  Weight: 90.703 kg

DRUGS (2)
  1. NICOTINE POLACRILEX [Suspect]
     Active Substance: NICOTINE
     Indication: Nicotine dependence
     Dosage: 2 MG, UNK
     Route: 002
     Dates: start: 20230310, end: 20230320
  2. PREVACID [Concomitant]
     Active Substance: LANSOPRAZOLE
     Indication: Product used for unknown indication
     Dosage: UNK, UNK
     Route: 065

REACTIONS (6)
  - Aphthous ulcer [Recovering/Resolving]
  - Contact stomatitis [Recovering/Resolving]
  - Eye irritation [Recovered/Resolved]
  - Lymphadenopathy [Recovering/Resolving]
  - Headache [Recovered/Resolved]
  - Dyspnoea [Recovered/Resolved]

NARRATIVE: CASE EVENT DATE: 20230313
